FAERS Safety Report 25812128 (Version 1)
Quarter: 2025Q3

REPORT INFORMATION
  Report Type: Spontaneous
  Country: JP (occurrence: JP)
  Receive Date: 20250917
  Receipt Date: 20250917
  Transmission Date: 20251020
  Serious: Yes (Death, Hospitalization)
  Sender: MERCK SHARP & DOHME LLC
  Company Number: JP-009507513-2329173

PATIENT
  Age: 6 Decade
  Sex: Male

DRUGS (3)
  1. PEMBROLIZUMAB [Suspect]
     Active Substance: PEMBROLIZUMAB
     Indication: Oesophageal squamous cell carcinoma
  2. FLUOROURACIL [Suspect]
     Active Substance: FLUOROURACIL
     Indication: Oesophageal squamous cell carcinoma
  3. CISPLATIN [Suspect]
     Active Substance: CISPLATIN
     Indication: Oesophageal squamous cell carcinoma

REACTIONS (7)
  - Hyperkalaemia [Fatal]
  - Immune-mediated enterocolitis [Unknown]
  - Thrombosis [Fatal]
  - Rhabdomyolysis [Fatal]
  - Immune-mediated vasculitis [Fatal]
  - Product use in unapproved indication [Unknown]
  - Aortic thrombosis [Unknown]
